FAERS Safety Report 23472933 (Version 1)
Quarter: 2024Q1

REPORT INFORMATION
  Report Type: Spontaneous
  Country: FR (occurrence: FR)
  Receive Date: 20240203
  Receipt Date: 20240203
  Transmission Date: 20240409
  Serious: Yes (Death)
  Sender: FDA-Public Use
  Company Number: None

PATIENT
  Age: 61 Year
  Sex: Female
  Weight: 82 kg

DRUGS (4)
  1. PROPRANOLOL [Suspect]
     Active Substance: PROPRANOLOL HYDROCHLORIDE
     Indication: Intentional overdose
     Route: 048
     Dates: start: 202201, end: 202201
  2. MIANSERIN HYDROCHLORIDE [Suspect]
     Active Substance: MIANSERIN HYDROCHLORIDE
     Indication: Intentional overdose
     Route: 048
     Dates: start: 202201, end: 202201
  3. OXAZEPAM [Suspect]
     Active Substance: OXAZEPAM
     Indication: Intentional overdose
     Dosage: NP
     Route: 048
     Dates: start: 202201, end: 202201
  4. BROMAZEPAM [Suspect]
     Active Substance: BROMAZEPAM
     Indication: Intentional overdose
     Route: 048
     Dates: start: 202201, end: 202201

REACTIONS (1)
  - Poisoning deliberate [Fatal]

NARRATIVE: CASE EVENT DATE: 20220101
